FAERS Safety Report 5103967-1 (Version None)
Quarter: 2006Q3

REPORT INFORMATION
  Report Type: 
  Country: None (occurrence: None)
  Receive Date: 20060908
  Receipt Date: 20060829
  Transmission Date: 20061208
  Serious: Yes (Death, Other)
  Sender: FDA-Public Use
  Company Number: 2006-03-2397

PATIENT
  Age: 77 Year
  Sex: Female
  Weight: 62.8 kg

DRUGS (7)
  1. INTEGRILIN [Suspect]
     Indication: DRUG USE FOR UNKNOWN INDICATION
     Dosage: 10 ML; QH; IV
     Route: 042
     Dates: start: 20060301, end: 20060330
  2. HEPARIN [Concomitant]
  3. PLAVIX [Concomitant]
  4. COUMADIN [Concomitant]
  5. ASPIRIN [Concomitant]
  6. LOPRESSOR [Concomitant]
  7. VYTORIN [Concomitant]

REACTIONS (7)
  - CARDIOGENIC SHOCK [None]
  - CHRONIC OBSTRUCTIVE PULMONARY DISEASE [None]
  - COAGULOPATHY [None]
  - CORONARY ARTERY DISEASE [None]
  - INJECTION SITE HAEMORRHAGE [None]
  - INTERNATIONAL NORMALISED RATIO INCREASED [None]
  - RETROPERITONEAL HAEMORRHAGE [None]
